FAERS Safety Report 19667045 (Version 3)
Quarter: 2021Q3

REPORT INFORMATION
  Report Type: Report from Study
  Country: CH (occurrence: IN)
  Receive Date: 20210806
  Receipt Date: 20210927
  Transmission Date: 20211014
  Serious: Yes (Hospitalization, Other)
  Sender: FDA-Public Use
  Company Number: IN-ASTELLAS-2021US029088

PATIENT
  Age: 39 Year
  Sex: Male

DRUGS (6)
  1. ISAVUCONAZOLE [Suspect]
     Active Substance: ISAVUCONAZOLE
     Route: 048
     Dates: start: 20210526
  2. ISAVUCONAZOLE [Suspect]
     Active Substance: ISAVUCONAZOLE
     Indication: RHINOCEREBRAL MUCORMYCOSIS
     Dosage: 200 MG, ONCE DAILY (TOOK LOADING DOSE AS 6 TABS/DAY AND THEN CONTINUED WITH 2 TABS/DAY)
     Route: 048
     Dates: start: 20210521
  3. ISAVUCONAZOLE [Suspect]
     Active Substance: ISAVUCONAZOLE
     Route: 048
  4. ONDERO [Concomitant]
     Indication: PRODUCT USED FOR UNKNOWN INDICATION
     Dosage: UNK UNK, UNKNOWN FREQ.
     Route: 065
  5. AMPHOTERICIN B. [Suspect]
     Active Substance: AMPHOTERICIN B
     Indication: PRODUCT USED FOR UNKNOWN INDICATION
     Dosage: 1 DF, ONCE DAILY (SINGLE DOSE)
     Route: 065
  6. FEBUTAZ [Concomitant]
     Active Substance: FEBUXOSTAT
     Indication: PRODUCT USED FOR UNKNOWN INDICATION
     Dosage: UNK UNK, UNKNOWN FREQ.
     Route: 065

REACTIONS (17)
  - Blood creatinine increased [Unknown]
  - Blood phosphorus increased [Unknown]
  - Headache [Unknown]
  - Tubulointerstitial nephritis [Recovering/Resolving]
  - Gamma-glutamyltransferase increased [Unknown]
  - Incorrect dose administered [Unknown]
  - Haematocrit decreased [Unknown]
  - Blood creatinine decreased [Unknown]
  - Off label use [Unknown]
  - Diabetes mellitus [Unknown]
  - Blood albumin decreased [Unknown]
  - Haemoglobin decreased [Unknown]
  - Blood calcium decreased [Unknown]
  - Blood urea increased [Unknown]
  - Oedema [Unknown]
  - Blood sodium abnormal [Unknown]
  - White blood cell count increased [Unknown]

NARRATIVE: CASE EVENT DATE: 20210521
